FAERS Safety Report 7400547-X (Version None)
Quarter: 2011Q1

REPORT INFORMATION
  Report Type: 
  Country: None (occurrence: None)
  Receive Date: 20110329
  Receipt Date: 20110311
  Transmission Date: 20110831
  Serious: Yes (Death, Hospitalization)
  Sender: FDA-Public Use
  Company Number: WAES 1101USA03631

PATIENT
  Age: 71 Year
  Sex: Female
  Weight: 44.9061 kg

DRUGS (13)
  1. CAP VORINOSTAT 100 MG INFUSION (FORM) CARFILZOMIB 45 MG [Suspect]
     Indication: DIFFUSE LARGE B-CELL LYMPHOMA RECURRENT
     Dosage: 200, 30 MG, BID, PO
     Route: 048
     Dates: start: 20110125, end: 20110126
  2. CAP VORINOSTAT 100 MG INFUSION (FORM) CARFILZOMIB 45 MG [Suspect]
     Indication: DIFFUSE LARGE B-CELL LYMPHOMA RECURRENT
     Dosage: 200, 30 MG, BID, PO
     Route: 048
     Dates: start: 20110208, end: 20110210
  3. CAP VORINOSTAT 100 MG INFUSION (FORM) CARFILZOMIB 45 MG [Suspect]
     Indication: DIFFUSE LARGE B-CELL LYMPHOMA RECURRENT
     Dosage: 200, 30 MG, BID, PO
     Route: 048
     Dates: start: 20110125, end: 20110127
  4. CAP VORINOSTAT 100 MG INFUSION (FORM) CARFILZOMIB 45 MG [Suspect]
     Indication: DIFFUSE LARGE B-CELL LYMPHOMA RECURRENT
     Dosage: 200, 30 MG, BID, PO
     Route: 048
     Dates: start: 20110208, end: 20110209
  5. NORVASC [Concomitant]
  6. ALLOPURINOL [Concomitant]
  7. CEFEPIME [Concomitant]
  8. LEVOTHYROXINE SODIUM [Concomitant]
  9. PROCHLORPERAZINE TAB [Concomitant]
  10. HYDRALAZINE [Concomitant]
  11. TETRACYCLINE [Concomitant]
  12. METOPROLOL SUCCINATE [Concomitant]
  13. NYSTATIN [Concomitant]

REACTIONS (16)
  - PNEUMONITIS [None]
  - BLOOD CALCIUM DECREASED [None]
  - FLUID OVERLOAD [None]
  - INTERSTITIAL LUNG DISEASE [None]
  - HAEMATOCRIT DECREASED [None]
  - HYPONATRAEMIA [None]
  - RADIATION FIBROSIS - LUNG [None]
  - PLATELET COUNT INCREASED [None]
  - CARDIOMEGALY [None]
  - INFECTION IN AN IMMUNOCOMPROMISED HOST [None]
  - BRONCHOPULMONARY ASPERGILLOSIS [None]
  - NEUTROPHIL COUNT INCREASED [None]
  - BLOOD MAGNESIUM DECREASED [None]
  - PNEUMONIA VIRAL [None]
  - HYPERTENSION [None]
  - PULMONARY OEDEMA [None]
